FAERS Safety Report 8824968 (Version 2)
Quarter: 2012Q4

REPORT INFORMATION
  Report Type: 
  Country: NL (occurrence: NL)
  Receive Date: 20121004
  Receipt Date: 20121113
  Transmission Date: 20130627
  Serious: Yes (Hospitalization)
  Sender: FDA-Public Use
  Company Number: NL-PFIZER INC-2012242590

PATIENT
  Age: 66 Year
  Sex: Male
  Weight: 112 kg

DRUGS (17)
  1. GENOTROPIN [Suspect]
     Indication: GROWTH HORMONE DEFICIENCY
     Dosage: 0.4 mg, 7/wk
     Route: 058
     Dates: start: 20060530
  2. CORTISONE ACETATE [Concomitant]
     Indication: ACTH DECREASED
     Dosage: UNK
     Dates: start: 19641015
  3. TESTOSTERONE [Concomitant]
     Indication: LUTEINISING HORMONE DEFICIENCY
     Dosage: UNK
     Dates: start: 19641015
  4. TESTOSTERONE [Concomitant]
     Indication: FOLLICLE-STIMULATING HORMONE DEFICIENCY
  5. TESTOSTERONE [Concomitant]
     Indication: TESTICULAR HYPOGONADISM
  6. VENTOLIN [Concomitant]
     Indication: CHRONIC BRONCHITIS
     Dosage: UNK
     Dates: start: 19830415
  7. BECOTIDE [Concomitant]
     Indication: CHRONIC BRONCHITIS
     Dosage: UNK
     Dates: start: 19830415
  8. LEVOTHYROXINE [Concomitant]
     Indication: TSH DECREASED
     Dosage: UNK
     Dates: start: 19941015
  9. LEVOTHYROXINE [Concomitant]
     Indication: PRIMARY HYPOTHYROIDISM
  10. OXIS [Concomitant]
     Indication: ASTHMA, UNSPECIFIED
     Dosage: UNK
     Dates: start: 19980201
  11. BERODUAL [Concomitant]
     Indication: ASTHMA, UNSPECIFIED
     Dosage: UNK
     Dates: start: 19981124
  12. PULMICORT [Concomitant]
     Indication: ASTHMA, UNSPECIFIED
     Dosage: UNK
     Dates: start: 19980201
  13. SUSTANON [Concomitant]
     Indication: LUTEINISING HORMONE DEFICIENCY
     Dosage: UNK
     Dates: start: 20050524
  14. SUSTANON [Concomitant]
     Indication: FOLLICLE-STIMULATING HORMONE DEFICIENCY
  15. SUSTANON [Concomitant]
     Indication: TESTICULAR HYPOGONADISM
  16. ASCAL [Concomitant]
     Dosage: UNK
  17. HYDROCORTISON [Concomitant]
     Dosage: UNK

REACTIONS (1)
  - Cholelithiasis [Recovered/Resolved]
